FAERS Safety Report 24891553 (Version 1)
Quarter: 2025Q1

REPORT INFORMATION
  Report Type: Spontaneous
  Country: US (occurrence: US)
  Receive Date: 20250127
  Receipt Date: 20250127
  Transmission Date: 20250409
  Serious: Yes (Other)
  Sender: E5 PHARMA
  Company Number: US-e5PHARMA-2025-US-003632

PATIENT
  Age: 74 Year
  Sex: Female

DRUGS (1)
  1. DIAZOXIDE [Suspect]
     Active Substance: DIAZOXIDE
     Indication: Hypoglycaemia

REACTIONS (1)
  - Respiratory failure [Unknown]
